FAERS Safety Report 7291442-8 (Version None)
Quarter: 2011Q1

REPORT INFORMATION
  Report Type: 
  Country: None (occurrence: None)
  Receive Date: 20110202
  Receipt Date: 20110120
  Transmission Date: 20110831
  Serious: Yes (Disabling)
  Sender: FDA-Public Use
  Company Number: 2011MA000565

PATIENT
  Age: 20 Year
  Sex: Female

DRUGS (7)
  1. CODEINE SULFATE [Concomitant]
  2. SERTRALINE [Concomitant]
  3. MIRTAZAPINE [Suspect]
     Dates: start: 20110114
  4. CITALOPRAM HYDROBROMIDE [Concomitant]
  5. NAPROXEN [Concomitant]
  6. PREV MEDS [Concomitant]
  7. PROPRANOLOL [Concomitant]

REACTIONS (2)
  - INTENTIONAL SELF-INJURY [None]
  - SUICIDAL IDEATION [None]
